FAERS Safety Report 23295612 (Version 1)
Quarter: 2023Q4

REPORT INFORMATION
  Report Type: Report from Study
  Country: IN (occurrence: IN)
  Receive Date: 20231214
  Receipt Date: 20231214
  Transmission Date: 20240110
  Serious: Yes (Other)
  Sender: FDA-Public Use
  Company Number: IN-002147023-NVSC2022IN079781

PATIENT
  Sex: Male
  Weight: 84 kg

DRUGS (3)
  1. TASIGNA [Suspect]
     Active Substance: NILOTINIB
     Indication: Chronic myeloid leukaemia
     Dosage: 300 MG, BID
     Route: 048
     Dates: start: 20190911
  2. TASIGNA [Suspect]
     Active Substance: NILOTINIB
     Dosage: 300 MG, BID
     Route: 048
     Dates: start: 20230530
  3. TASIGNA [Suspect]
     Active Substance: NILOTINIB
     Dosage: 300 MG, BID
     Route: 048
     Dates: start: 20230818

REACTIONS (5)
  - White blood cell count abnormal [Unknown]
  - Platelet count abnormal [Unknown]
  - Haemoglobin abnormal [Unknown]
  - Oxygen saturation abnormal [Unknown]
  - Cough [Not Recovered/Not Resolved]
